FAERS Safety Report 8663022 (Version 3)
Quarter: 2012Q4

REPORT INFORMATION
  Report Type: 
  Country: US (occurrence: US)
  Receive Date: 20120712
  Receipt Date: 20120830
  Transmission Date: 20130627
  Serious: Yes (Death, Other)
  Sender: FDA-Public Use
  Company Number: US-BAYER-2012-068677

PATIENT
  Age: 22 Year
  Sex: Female

DRUGS (1)
  1. ULTRAVIST [Suspect]
     Indication: ABDOMEN SCAN
     Dosage: 125 ml, ONCE
     Route: 042
     Dates: start: 20120703, end: 20120703

REACTIONS (6)
  - Anaphylactic shock [Fatal]
  - Palpitations [Fatal]
  - Dyspnoea [Fatal]
  - Hypotension [Fatal]
  - Acute pulmonary oedema [Fatal]
  - Cardiac arrest [Fatal]
